FAERS Safety Report 5104725-4 (Version None)
Quarter: 2006Q3

REPORT INFORMATION
  Report Type: 
  Country: None (occurrence: None)
  Receive Date: 20060731
  Receipt Date: 20050615
  Transmission Date: 20061208
  Serious: Yes (Hospitalization, Other)
  Sender: FDA-Public Use
  Company Number: US-JNJFOC-20050100639

PATIENT
  Age: 52 Year
  Sex: Female

DRUGS (2)
  1. RISPERDAL [Suspect]
     Indication: BIPOLAR DISORDER
     Dosage: ORAL
     Route: 048
  2. NEURONTIN [Concomitant]

REACTIONS (9)
  - ANXIETY [None]
  - DYSARTHRIA [None]
  - HEPATIC STEATOSIS [None]
  - INSOMNIA [None]
  - NERVOUSNESS [None]
  - PANCREATITIS [None]
  - SEXUAL DYSFUNCTION [None]
  - SUICIDAL IDEATION [None]
  - WEIGHT INCREASED [None]
